FAERS Safety Report 17711959 (Version 3)
Quarter: 2020Q3

REPORT INFORMATION
  Report Type: Spontaneous
  Country: SK (occurrence: SK)
  Receive Date: 20200427
  Receipt Date: 20200731
  Transmission Date: 20201102
  Serious: Yes (Hospitalization)
  Sender: FDA-Public Use
  Company Number: SK-TEVA-2020-SK-1229346

PATIENT
  Age: 6 Year
  Sex: Female

DRUGS (10)
  1. AMIKACIN. [Suspect]
     Active Substance: AMIKACIN
     Indication: FEBRILE NEUTROPENIA
     Route: 065
  2. AMPHOTERICIN B. [Suspect]
     Active Substance: AMPHOTERICIN B
     Indication: RHINOCEREBRAL MUCORMYCOSIS
  3. RIBAVIRIN. [Concomitant]
     Active Substance: RIBAVIRIN
  4. FLUCONAZOLE. [Suspect]
     Active Substance: FLUCONAZOLE
     Indication: ANTIFUNGAL PROPHYLAXIS
     Route: 065
  5. PIPERACILLIN/TAZOBACTAM [Suspect]
     Active Substance: PIPERACILLIN SODIUM\TAZOBACTAM SODIUM
     Indication: FEBRILE NEUTROPENIA
     Route: 065
  6. VANCOMYCIN [Suspect]
     Active Substance: VANCOMYCIN
     Route: 065
  7. PREDNISONE. [Suspect]
     Active Substance: PREDNISONE
     Indication: IMMUNOSUPPRESSANT DRUG THERAPY
     Route: 065
  8. MEROPENEM. [Suspect]
     Active Substance: MEROPENEM
     Route: 065
  9. AMPHOTERICIN B. [Suspect]
     Active Substance: AMPHOTERICIN B
     Dosage: 5 MG/KG DAILY;
  10. METHOTREXATE. [Suspect]
     Active Substance: METHOTREXATE
     Indication: B PRECURSOR TYPE ACUTE LEUKAEMIA
     Route: 065

REACTIONS (3)
  - Mucormycosis [Recovered/Resolved]
  - Off label use [Unknown]
  - Rhinocerebral mucormycosis [Recovered/Resolved]
